FAERS Safety Report 5826526-1 (Version None)
Quarter: 2008Q3

REPORT INFORMATION
  Report Type: 
  Country: None (occurrence: None)
  Receive Date: 20080725
  Receipt Date: 20080719
  Transmission Date: 20090109
  Serious: Yes (Hospitalization)
  Sender: FDA-Public Use
  Company Number: CHPA2008US12123

PATIENT
  Age: 98 Year
  Sex: Female

DRUGS (1)
  1. VOLTAREN [Suspect]
     Indication: OSTEOARTHRITIS
     Dosage: APPLIED Q 2 HOURS, TOPICAL
     Route: 061
     Dates: start: 20080711, end: 20080712

REACTIONS (1)
  - DIZZINESS [None]
